FAERS Safety Report 8888464 (Version 1)
Quarter: 2012Q4

REPORT INFORMATION
  Report Type: 
  Country: GB (occurrence: GB)
  Receive Date: 20121106
  Receipt Date: 20121106
  Transmission Date: 20130627
  Serious: Yes (Other)
  Sender: FDA-Public Use
  Company Number: GB-BAYER-2012-113401

PATIENT
  Sex: Female

DRUGS (1)
  1. MIRENA [Suspect]
     Dosage: 20 mcg/24hr, CONT
     Route: 015
     Dates: start: 201209, end: 20121024

REACTIONS (4)
  - Abdominal distension [Recovering/Resolving]
  - Pain in extremity [Unknown]
  - Suicidal ideation [Unknown]
  - Haemorrhage [Unknown]
